FAERS Safety Report 18212851 (Version 2)
Quarter: 2025Q3

REPORT INFORMATION
  Report Type: Spontaneous
  Country: EU (occurrence: EU)
  Receive Date: 20200831
  Receipt Date: 20250714
  Transmission Date: 20251020
  Serious: Yes (Hospitalization, Other)
  Sender: BRISTOL-MYERS SQUIBB COMPANY
  Company Number: EU-BRISTOL-MYERS SQUIBB COMPANY-BMS-2020-065966

PATIENT
  Age: 87 Year
  Sex: Female
  Weight: 60 kg

DRUGS (22)
  1. ELIQUIS [Interacting]
     Active Substance: APIXABAN
     Indication: Cerebrovascular accident prophylaxis
     Route: 048
     Dates: start: 2018
  2. ELIQUIS [Interacting]
     Active Substance: APIXABAN
     Indication: Atrial fibrillation
  3. IRON [Interacting]
     Active Substance: IRON
     Indication: Product used for unknown indication
  4. MIRTAZAPINE [Interacting]
     Active Substance: MIRTAZAPINE
     Indication: Sleep disorder
  5. PREGABALIN [Interacting]
     Active Substance: PREGABALIN
     Indication: Neuropathy peripheral
     Dosage: 25 MILLIGRAMS, ONCE A DAY (0-0-1-0)
  6. TORSEMIDE [Interacting]
     Active Substance: TORSEMIDE
     Indication: Diuretic therapy
  7. INSULIN NOS [Interacting]
     Active Substance: INSULIN NOS
     Indication: Product used for unknown indication
  8. INSULIN LISPRO [Interacting]
     Active Substance: INSULIN LISPRO
     Indication: Product used for unknown indication
  9. NITROLINGUAL [Interacting]
     Active Substance: NITROGLYCERIN
     Indication: Product used for unknown indication
  10. ALLOPURINOL [Interacting]
     Active Substance: ALLOPURINOL
     Indication: Product used for unknown indication
  11. BENFOTIAMINE [Interacting]
     Active Substance: BENFOTIAMINE
     Indication: Neuropathy peripheral
  12. NOVALGIN (METAMIZOLE SODIUM) [Interacting]
     Active Substance: METAMIZOLE SODIUM
     Indication: Product used for unknown indication
  13. BISOPROLOL FUMARATE [Interacting]
     Active Substance: BISOPROLOL FUMARATE
     Indication: Product used for unknown indication
  14. XIPAMIDE [Interacting]
     Active Substance: XIPAMIDE
     Indication: Product used for unknown indication
  15. PANTOPRAZOLE SODIUM [Interacting]
     Active Substance: PANTOPRAZOLE SODIUM
     Indication: Product used for unknown indication
  16. ATORVASTATIN CALCIUM [Interacting]
     Active Substance: ATORVASTATIN CALCIUM
     Indication: Product used for unknown indication
  17. CHOLECALCIFEROL [Interacting]
     Active Substance: CHOLECALCIFEROL
     Indication: Product used for unknown indication
     Dosage: 20000 1 X 1 WEEKLY
  18. POTASSIUM CHLORIDE [Interacting]
     Active Substance: POTASSIUM CHLORIDE
     Indication: Product used for unknown indication
  19. MOVICOL [Interacting]
     Active Substance: POLYETHYLENE GLYCOL 3350\POTASSIUM CHLORIDE\SODIUM BICARBONATE\SODIUM CHLORIDE
     Indication: Constipation
  20. HYALURONATE SODIUM [Interacting]
     Active Substance: HYALURONATE SODIUM
     Indication: Dry eye
  21. GENTAMICIN [Interacting]
     Active Substance: GENTAMICIN
     Indication: Product used for unknown indication
     Dosage: UNK, UNK, QD
  22. COD LIVER OIL\UREA\ZINC OXIDE [Interacting]
     Active Substance: COD LIVER OIL\UREA\ZINC OXIDE
     Indication: Product used for unknown indication

REACTIONS (2)
  - Gastrointestinal haemorrhage [Unknown]
  - Drug interaction [Unknown]
